FAERS Safety Report 12897685 (Version 1)
Quarter: 2016Q4

REPORT INFORMATION
  Report Type: Spontaneous
  Country: US (occurrence: US)
  Receive Date: 20161031
  Receipt Date: 20161031
  Transmission Date: 20170207
  Serious: No
  Sender: FDA-Public Use
  Company Number: US-009507513-1610USA002154

PATIENT
  Age: 25 Year
  Sex: Female
  Weight: 52.61 kg

DRUGS (2)
  1. NEXPLANON [Suspect]
     Active Substance: ETONOGESTREL
     Indication: CONTRACEPTION
     Dosage: UNK, FOR THREE YEARS, LEFT ARM
     Route: 059
     Dates: start: 20160908
  2. IBUPROFEN. [Concomitant]
     Active Substance: IBUPROFEN
     Dosage: UNK

REACTIONS (2)
  - Weight decreased [Unknown]
  - Menorrhagia [Unknown]

NARRATIVE: CASE EVENT DATE: 20160921
